FAERS Safety Report 5388861-3 (Version None)
Quarter: 2007Q3

REPORT INFORMATION
  Report Type: 
  Country: None (occurrence: None)
  Receive Date: 20070709
  Receipt Date: 20070625
  Transmission Date: 20080115
  Serious: Yes (Life-Threatening, Hospitalization)
  Sender: FDA-Public Use
  Company Number: WSDF_00648

PATIENT
  Age: 62 Year
  Sex: Female

DRUGS (7)
  1. WINRHO SDF [Suspect]
     Dosage: 75 MCG/KG ONCE IV
     Route: 042
     Dates: start: 20070605, end: 20070605
  2. LEVOTHYROXINE SODIUM [Concomitant]
  3. DIGOXIN [Concomitant]
  4. METHYLPREDNISOLONE [Concomitant]
  5. LASIX [Concomitant]
  6. DIPRIVAN [Concomitant]
  7. DOPAMINE HCL [Concomitant]

REACTIONS (8)
  - ACUTE RESPIRATORY FAILURE [None]
  - DISSEMINATED INTRAVASCULAR COAGULATION [None]
  - HAEMOLYSIS [None]
  - HEPATIC FAILURE [None]
  - LETHARGY [None]
  - RENAL FAILURE ACUTE [None]
  - RESPIRATORY ARREST [None]
  - SEPSIS [None]
